FAERS Safety Report 24575611 (Version 1)
Quarter: 2024Q4

REPORT INFORMATION
  Report Type: Spontaneous
  Country: US (occurrence: None)
  Receive Date: 20241101
  Receipt Date: 20241101
  Transmission Date: 20250115
  Serious: Yes (Hospitalization)
  Sender: Public
  Company Number: None

PATIENT
  Age: 74 Year
  Sex: Male
  Weight: 59 kg

DRUGS (2)
  1. AMITRIPTYLINE HYDROCHLORIDE [Suspect]
     Active Substance: AMITRIPTYLINE HYDROCHLORIDE
     Indication: Pain
     Dosage: 25.00 MG AT BEDTIME ORAL
     Route: 048
     Dates: start: 20240227, end: 20240719
  2. ZOLPIDEM TARTRATE [Suspect]
     Active Substance: ZOLPIDEM TARTRATE
     Dosage: 10.00 MG AT BEDTIME ORAL
     Route: 048

REACTIONS (3)
  - Seizure [None]
  - Drug ineffective [None]
  - Sleep disorder [None]

NARRATIVE: CASE EVENT DATE: 20240719
